FAERS Safety Report 8067097-1 (Version None)
Quarter: 2012Q1

REPORT INFORMATION
  Report Type: 
  Country: None (occurrence: None)
  Receive Date: 20120124
  Receipt Date: 20120117
  Transmission Date: 20120608
  Serious: Yes (Hospitalization, Other)
  Sender: FDA-Public Use
  Company Number: GB-B.I. PHARMACEUTICALS,INC./RIDGEFIELD-2012-UK-00054UK

PATIENT
  Age: 78 Year
  Sex: Female

DRUGS (4)
  1. CEFALEXINE [Concomitant]
     Indication: THROMBOSIS
     Route: 042
     Dates: start: 20110630, end: 20110701
  2. PRADAXA [Suspect]
     Indication: THROMBOSIS PROPHYLAXIS
     Dosage: 150 MG
     Route: 048
     Dates: start: 20110701, end: 20110705
  3. PRADAXA [Suspect]
  4. ONDANSETRON [Concomitant]
     Dosage: 4 MG
     Route: 048
     Dates: start: 20110601, end: 20110706

REACTIONS (2)
  - BLISTER [None]
  - OEDEMA PERIPHERAL [None]
